FAERS Safety Report 4288376-X (Version None)
Quarter: 2004Q1

REPORT INFORMATION
  Report Type: 
  Country: None (occurrence: None)
  Receive Date: 20040209
  Receipt Date: 20030923
  Transmission Date: 20041129
  Serious: No
  Sender: FDA-Public Use
  Company Number: US-GLAXOSMITHKLINE-A0427046A

PATIENT
  Age: 42 Year
  Sex: Female
  Weight: 58.6 kg

DRUGS (1)
  1. PAXIL [Suspect]

REACTIONS (1)
  - YAWNING [None]
